FAERS Safety Report 7612765-6 (Version None)
Quarter: 2011Q3

REPORT INFORMATION
  Report Type: 
  Country: None (occurrence: None)
  Receive Date: 20110708
  Receipt Date: 20110630
  Transmission Date: 20111222
  Serious: Yes (Hospitalization)
  Sender: FDA-Public Use
  Company Number: 2011SP029634

PATIENT
  Age: 59 Year
  Sex: Male
  Weight: 62 kg

DRUGS (3)
  1. REBETOL [Suspect]
     Indication: HEPATITIS C
     Dosage: 1000 MG, QD;
     Dates: start: 20110420, end: 20110622
  2. VIRAFERONPEG [Suspect]
     Indication: HEPATITIS C
     Dosage: 90 MCG, SC
     Route: 058
     Dates: start: 20110420, end: 20110622
  3. BOCEPREVIR (SCH-503034) [Suspect]
     Indication: HEPATITIS C
     Dosage: 800 MG, TID, PO
     Route: 048
     Dates: start: 20110608, end: 20110615

REACTIONS (1)
  - BACK PAIN [None]
